FAERS Safety Report 24203480 (Version 3)
Quarter: 2025Q4

REPORT INFORMATION
  Report Type: Spontaneous
  Country: CA (occurrence: CA)
  Receive Date: 20240813
  Receipt Date: 20251222
  Transmission Date: 20260117
  Serious: Yes (Other)
  Sender: AUROBINDO
  Company Number: CA-MLMSERVICE-20230510-4279511-1

PATIENT
  Age: 43 Year
  Sex: Female

DRUGS (18)
  1. CIPROFLOXACIN [Suspect]
     Active Substance: CIPROFLOXACIN
     Indication: Skin bacterial infection
     Dosage: UNK
     Route: 061
  2. CIPROFLOXACIN [Suspect]
     Active Substance: CIPROFLOXACIN
     Indication: Mycobacterium chelonae infection
     Dosage: 750 MILLIGRAM, TWO TIMES A DAY
     Route: 061
  3. CIPROFLOXACIN [Suspect]
     Active Substance: CIPROFLOXACIN
     Dosage: UNK
     Route: 065
  4. CIPROFLOXACIN [Suspect]
     Active Substance: CIPROFLOXACIN
     Dosage: 750 MILLIGRAM 1 EVERY .5 DAYS
     Route: 061
  5. DOXYCYCLINE [Suspect]
     Active Substance: DOXYCYCLINE
     Indication: Mycobacterium chelonae infection
     Dosage: UNK
  6. MOXIFLOXACIN [Suspect]
     Active Substance: MOXIFLOXACIN
     Indication: Mycobacterium chelonae infection
     Dosage: UNK
     Route: 065
  7. AMIKACIN SULFATE [Suspect]
     Active Substance: AMIKACIN SULFATE
     Indication: Mycobacterium chelonae infection
     Dosage: UNK
  8. CEFOXITIN [Suspect]
     Active Substance: CEFOXITIN SODIUM
     Indication: Mycobacterium chelonae infection
     Dosage: UNK
     Route: 065
  9. DOXYCYCLINE [Suspect]
     Active Substance: DOXYCYCLINE
     Indication: Mycobacterium chelonae infection
     Dosage: UNK
     Route: 065
  10. SULFATRIM [Suspect]
     Active Substance: SULFAMETHOXAZOLE\TRIMETHOPRIM
     Indication: Mycobacterium chelonae infection
     Dosage: UNK
     Route: 065
  11. CLARITHROMYCIN [Concomitant]
     Active Substance: CLARITHROMYCIN
     Indication: Skin bacterial infection
     Dosage: UNK
     Route: 061
  12. CLARITHROMYCIN [Concomitant]
     Active Substance: CLARITHROMYCIN
     Indication: Mycobacterium chelonae infection
  13. TOBRAMYCIN [Concomitant]
     Active Substance: TOBRAMYCIN
     Indication: Skin bacterial infection
     Dosage: UNK
     Route: 065
  14. TOBRAMYCIN [Concomitant]
     Active Substance: TOBRAMYCIN
     Indication: Mycobacterium chelonae infection
  15. TIGECYCLINE [Concomitant]
     Active Substance: TIGECYCLINE
     Indication: Skin bacterial infection
     Dosage: UNK
     Route: 065
  16. TIGECYCLINE [Concomitant]
     Active Substance: TIGECYCLINE
     Indication: Mycobacterium chelonae infection
  17. CLOFAZIMINE [Concomitant]
     Active Substance: CLOFAZIMINE
     Indication: Skin bacterial infection
     Dosage: UNK
     Route: 065
  18. CLOFAZIMINE [Concomitant]
     Active Substance: CLOFAZIMINE
     Indication: Mycobacterium chelonae infection

REACTIONS (7)
  - Antimicrobial susceptibility test intermediate [Unknown]
  - Nausea [Unknown]
  - Vomiting [Unknown]
  - Nephropathy toxic [Unknown]
  - Drug resistance [Unknown]
  - Drug intolerance [Unknown]
  - Drug ineffective [Unknown]
